FAERS Safety Report 11919756 (Version 2)
Quarter: 2016Q1

REPORT INFORMATION
  Report Type: Report from Study
  Country: CA (occurrence: CA)
  Receive Date: 20160115
  Receipt Date: 20160122
  Transmission Date: 20160526
  Serious: Yes (Hospitalization)
  Sender: FDA-Public Use
  Company Number: CA-ROCHE-1689633

PATIENT
  Sex: Female

DRUGS (10)
  1. ACTONEL [Concomitant]
     Active Substance: RISEDRONATE SODIUM
  2. PREDNISONE. [Concomitant]
     Active Substance: PREDNISONE
  3. FERROUS GLUCONATE [Concomitant]
     Active Substance: FERROUS GLUCONATE
  4. ASA [Concomitant]
     Active Substance: ASPIRIN
  5. AMLODIPINE [Concomitant]
     Active Substance: AMLODIPINE BESYLATE
  6. SULFASALAZINE. [Concomitant]
     Active Substance: SULFASALAZINE
  7. ACTEMRA [Suspect]
     Active Substance: TOCILIZUMAB
     Indication: RHEUMATOID ARTHRITIS
     Route: 042
     Dates: start: 20130417, end: 20140407
  8. ARAVA [Concomitant]
     Active Substance: LEFLUNOMIDE
  9. FENTANYL TRANSDERMAL SYSTEM [Concomitant]
     Active Substance: FENTANYL
  10. COVERSYL [Concomitant]
     Active Substance: PERINDOPRIL

REACTIONS (4)
  - Fungal infection [Recovered/Resolved]
  - Pyrexia [Unknown]
  - Rheumatoid arthritis [Not Recovered/Not Resolved]
  - Intestinal obstruction [Unknown]

NARRATIVE: CASE EVENT DATE: 2015
